FAERS Safety Report 23719830 (Version 1)
Quarter: 2024Q2

REPORT INFORMATION
  Report Type: Spontaneous
  Country: US (occurrence: US)
  Receive Date: 20240408
  Receipt Date: 20240408
  Transmission Date: 20240716
  Serious: No
  Sender: FDA-Public Use
  Company Number: US-MYLANLABS-2024M1027470

PATIENT
  Age: 47 Year
  Sex: Male
  Weight: 104.33 kg

DRUGS (3)
  1. GABAPENTIN [Suspect]
     Active Substance: GABAPENTIN
     Indication: Product used for unknown indication
     Dosage: 300 MILLIGRAM, TID
     Route: 065
     Dates: start: 20240208, end: 20240212
  2. NUZYRA [Suspect]
     Active Substance: OMADACYCLINE
     Indication: Skin ulcer
     Dosage: 450 MILLIGRAM, QD
     Route: 048
     Dates: start: 20240206, end: 20240207
  3. NUZYRA [Suspect]
     Active Substance: OMADACYCLINE
     Dosage: 300 MILLIGRAM, QD
     Route: 048
     Dates: start: 20240208, end: 20240216

REACTIONS (3)
  - Rash erythematous [Recovered/Resolved]
  - Blister [Recovered/Resolved]
  - Hypersensitivity [Recovered/Resolved]

NARRATIVE: CASE EVENT DATE: 20240212
